FAERS Safety Report 17732450 (Version 5)
Quarter: 2020Q3

REPORT INFORMATION
  Report Type: Report from Study
  Country: None (occurrence: DE)
  Receive Date: 20200501
  Receipt Date: 20200720
  Transmission Date: 20201102
  Serious: Yes (Hospitalization, Other)
  Sender: FDA-Public Use
  Company Number: DE-ABBVIE-20K-062-3386608-00

PATIENT
  Age: 33 Year
  Sex: Female

DRUGS (4)
  1. HUMIRA [Suspect]
     Active Substance: ADALIMUMAB
     Indication: AXIAL SPONDYLOARTHRITIS
     Route: 058
     Dates: start: 20191010
  2. IBUPROFEN. [Concomitant]
     Active Substance: IBUPROFEN
     Route: 065
     Dates: start: 20190415
  3. IBUPROFEN. [Concomitant]
     Active Substance: IBUPROFEN
     Indication: PRODUCT USED FOR UNKNOWN INDICATION
     Route: 065
     Dates: start: 20180326, end: 20181029
  4. SULFASALAZINE DELAYED?RELEASE [Concomitant]
     Active Substance: SULFASALAZINE
     Indication: PRODUCT USED FOR UNKNOWN INDICATION
     Route: 065
     Dates: start: 20150201

REACTIONS (5)
  - Abortion spontaneous [Unknown]
  - Contusion [Not Recovered/Not Resolved]
  - Maternal exposure during pregnancy [Unknown]
  - In vitro fertilisation [Unknown]
  - Road traffic accident [Not Recovered/Not Resolved]

NARRATIVE: CASE EVENT DATE: 20191127
